FAERS Safety Report 8489262-1 (Version None)
Quarter: 2012Q2

REPORT INFORMATION
  Report Type: 
  Country: None (occurrence: None)
  Receive Date: 20120628
  Receipt Date: 20120628
  Transmission Date: 20120825
  Serious: No
  Sender: FDA-Public Use
  Company Number: None

PATIENT
  Sex: Female
  Weight: 74.9 kg

DRUGS (14)
  1. FLUDARABINE PHOSPHATE [Suspect]
     Dosage: 138 MG
     Dates: start: 20120602
  2. NYSTAY-LIDOCAINE [Concomitant]
  3. SULFAMETHOXAZOLE AND TRIMETHOPRIM [Concomitant]
  4. RITUXIMAB (MOAB C2B8 ANTI CD20, CHIMERIC) [Suspect]
     Dosage: 915 MG
     Dates: start: 20120503
  5. CLOTRIMAZOLE TOPICAL [Concomitant]
  6. ENALAPRIL MALEATE [Concomitant]
  7. HYDROCOTISONE TOPICAL [Concomitant]
  8. CALCIUM CARBONATE [Concomitant]
  9. OMEGA 3 FATTY ACIDS [Concomitant]
  10. ODANSETRON [Concomitant]
  11. HYDROCHLOROTHIAZIDE [Concomitant]
  12. CYCLOPHOSPHAMIDE [Suspect]
     Dosage: 1372.5 MG
     Dates: start: 20120602
  13. VITAMEN D [Concomitant]
  14. SIMVASTATIN [Concomitant]

REACTIONS (3)
  - PLATELET COUNT DECREASED [None]
  - LYMPHOCYTE COUNT DECREASED [None]
  - NEUTROPHIL COUNT DECREASED [None]
